FAERS Safety Report 20185323 (Version 4)
Quarter: 2023Q1

REPORT INFORMATION
  Report Type: Spontaneous
  Country: DE (occurrence: DE)
  Receive Date: 20211215
  Receipt Date: 20230327
  Transmission Date: 20230417
  Serious: Yes (Other)
  Sender: FDA-Public Use
  Company Number: DE-Orion Corporation ORION PHARMA-DCLS2021-0001

PATIENT
  Age: 80 Year
  Sex: Female

DRUGS (3)
  1. RISEDRONATE SODIUM [Suspect]
     Active Substance: RISEDRONATE SODIUM
     Indication: Rheumatoid arthritis
     Dosage: 35 MILLIGRAM, EVERY WEEK
     Route: 065
  2. CALCIUM CARBONATE\CHOLECALCIFEROL [Suspect]
     Active Substance: CALCIUM CARBONATE\CHOLECALCIFEROL
     Indication: Rheumatoid arthritis
     Dosage: ONCE A DAY (DAILY CAD3)
     Route: 065
  3. METHYLPREDNISOLONE [Concomitant]
     Active Substance: METHYLPREDNISOLONE
     Indication: Rheumatoid arthritis
     Dosage: 5 MILLIGRAM, ONCE A DAY (5 MG PER DAY FOR 18 YEARS)
     Route: 048

REACTIONS (4)
  - Mitral valve incompetence [Unknown]
  - Aortic stenosis [Unknown]
  - Aortic valve calcification [Unknown]
  - Mitral valve calcification [Unknown]
